FAERS Safety Report 20130044 (Version 1)
Quarter: 2021Q4

REPORT INFORMATION
  Report Type: Spontaneous
  Country: US (occurrence: US)
  Receive Date: 20211130
  Receipt Date: 20211130
  Transmission Date: 20220303
  Serious: No
  Sender: FDA-Public Use
  Company Number: US-MICRO LABS LIMITED-ML2021-01946

PATIENT
  Sex: Female

DRUGS (2)
  1. DORZOLAMIDE\TIMOLOL [Suspect]
     Active Substance: DORZOLAMIDE\TIMOLOL
     Indication: Glaucoma
     Dosage: STRENGTH: 22.3 MG/6.8 MG PER ML - ONE DROP IN EACH EYE EVERY DAY
  2. LATANOPROST [Concomitant]
     Active Substance: LATANOPROST
     Dosage: LATANOPROST EYE DROPS, ONE DROP IN EACH EYE AT BEDTIME FOR A LONG PERIOD OF TIME

REACTIONS (4)
  - Dysarthria [Not Recovered/Not Resolved]
  - Vision blurred [Not Recovered/Not Resolved]
  - Headache [Not Recovered/Not Resolved]
  - Dizziness [Not Recovered/Not Resolved]
